FAERS Safety Report 18954126 (Version 6)
Quarter: 2021Q2

REPORT INFORMATION
  Report Type: Report from Study
  Country: US (occurrence: US)
  Receive Date: 20210301
  Receipt Date: 20210514
  Transmission Date: 20210717
  Serious: Yes (Other)
  Sender: FDA-Public Use
  Company Number: US-GLAXOSMITHKLINE-US2021AMR053837

PATIENT
  Sex: Female

DRUGS (4)
  1. NIRAPARIB [Suspect]
     Active Substance: NIRAPARIB
     Dosage: 100 MG, QD
  2. NIRAPARIB [Suspect]
     Active Substance: NIRAPARIB
     Indication: OVARIAN CANCER
     Dosage: 100 MG, QD
     Dates: start: 20210131
  3. NIRAPARIB [Suspect]
     Active Substance: NIRAPARIB
     Dosage: 100 MG, QD
     Dates: start: 20210219
  4. NIRAPARIB [Suspect]
     Active Substance: NIRAPARIB
     Dosage: 100 MG, QD
     Route: 048

REACTIONS (11)
  - Off label use [Unknown]
  - Constipation [Recovering/Resolving]
  - Rash [Not Recovered/Not Resolved]
  - Nausea [Recovered/Resolved]
  - Blood sodium decreased [Not Recovered/Not Resolved]
  - Pollakiuria [Recovering/Resolving]
  - Rhinorrhoea [Recovering/Resolving]
  - Neuropathy peripheral [Recovering/Resolving]
  - Blood pressure increased [Not Recovered/Not Resolved]
  - Blood albumin decreased [Recovered/Resolved]
  - Blood albumin increased [Unknown]
